FAERS Safety Report 11218165 (Version 1)
Quarter: 2015Q2

REPORT INFORMATION
  Report Type: Spontaneous
  Country: DE (occurrence: DE)
  Receive Date: 20150625
  Receipt Date: 20150625
  Transmission Date: 20150821
  Serious: Yes (Hospitalization, Other)
  Sender: FDA-Public Use
  Company Number: DE-TEVA-571033GER

PATIENT
  Age: 1 Day
  Sex: Female
  Weight: 3.6 kg

DRUGS (5)
  1. UTROGEST [Concomitant]
     Active Substance: PROGESTERONE
     Indication: PROPHYLAXIS OF ABORTION
     Route: 064
  2. PREDNISON [Concomitant]
     Active Substance: PREDNISONE
     Indication: PROPHYLAXIS OF ABORTION
     Route: 064
  3. FOLIC ACID. [Concomitant]
     Active Substance: FOLIC ACID
     Indication: PROPHYLAXIS OF NEURAL TUBE DEFECT
     Route: 064
     Dates: start: 20140418, end: 20141210
  4. L-THYROX [Concomitant]
     Active Substance: LEVOTHYROXINE SODIUM
     Indication: HYPOTHYROIDISM
     Dosage: BETWEEN 150 MICROGRAM DAILY TO 75 MIRCROG DAILY
     Route: 064
     Dates: start: 20140418, end: 20150113
  5. SERTRALINE [Suspect]
     Active Substance: SERTRALINE HYDROCHLORIDE
     Indication: DEPRESSION
     Dosage: 100 MG DAILY MAYBE REDUCTION TO 50 MG DAILY IN GW 33+6
     Route: 064
     Dates: start: 20140418, end: 20150113

REACTIONS (3)
  - Foetal exposure during pregnancy [Unknown]
  - Respiratory disorder neonatal [Recovered/Resolved]
  - Apnoea neonatal [Recovered/Resolved]

NARRATIVE: CASE EVENT DATE: 20150113
